FAERS Safety Report 5724606-2 (Version None)
Quarter: 2008Q2

REPORT INFORMATION
  Report Type: 
  Country: None (occurrence: None)
  Receive Date: 20080430
  Receipt Date: 20080430
  Transmission Date: 20081010
  Serious: Yes (Hospitalization)
  Sender: FDA-Public Use
  Company Number: None

PATIENT
  Age: 80 Year
  Sex: Male
  Weight: 88.9 kg

DRUGS (5)
  1. SORAFENIB [Suspect]
     Indication: PROSTATE CANCER
     Dosage: 400MG TWICE DAILY PO
     Route: 048
     Dates: start: 20080421, end: 20080428
  2. PREDNISONE TAB [Concomitant]
  3. ASPIRIN [Concomitant]
  4. VITAMIN CAP [Concomitant]
  5. TAXOTERE [Concomitant]

REACTIONS (2)
  - ATRIAL FIBRILLATION [None]
  - ATRIAL FLUTTER [None]
